FAERS Safety Report 11631487 (Version 1)
Quarter: 2015Q4

REPORT INFORMATION
  Report Type: Spontaneous
  Country: IT (occurrence: IT)
  Receive Date: 20151015
  Receipt Date: 20151015
  Transmission Date: 20160304
  Serious: No
  Sender: FDA-Public Use
  Company Number: IT-GLENMARK PHARMACEUTICALS INC, USA.-2015GMK014982

PATIENT
  Age: 76 Year
  Sex: Female

DRUGS (4)
  1. GABAPENTIN. [Suspect]
     Active Substance: GABAPENTIN
     Indication: ARTERIAL DISORDER
  2. GABAPENTIN. [Suspect]
     Active Substance: GABAPENTIN
     Indication: PAIN IN EXTREMITY
     Dosage: 450 MG, QD
  3. OXYCODONE [Suspect]
     Active Substance: OXYCODONE
     Indication: ARTERIAL DISORDER
  4. OXYCODONE [Suspect]
     Active Substance: OXYCODONE
     Indication: PAIN IN EXTREMITY
     Dosage: 40 MG, QD

REACTIONS (3)
  - Off label use [Unknown]
  - Drug ineffective [Unknown]
  - Abasia [None]
